FAERS Safety Report 8215968-5 (Version None)
Quarter: 2012Q1

REPORT INFORMATION
  Report Type: 
  Country: None (occurrence: None)
  Receive Date: 20120316
  Receipt Date: 20120313
  Transmission Date: 20120608
  Serious: No
  Sender: FDA-Public Use
  Company Number: US-PFIZER INC-2012067568

PATIENT
  Sex: Female

DRUGS (1)
  1. LYRICA [Suspect]
     Dosage: 450 MG, DAILY
     Dates: end: 20120301

REACTIONS (2)
  - MALAISE [None]
  - DRUG WITHDRAWAL SYNDROME [None]
